FAERS Safety Report 8980665 (Version 3)
Quarter: 2013Q4

REPORT INFORMATION
  Report Type: Report from Study
  Country: JP (occurrence: JP)
  Receive Date: 20121221
  Receipt Date: 20131011
  Transmission Date: 20140711
  Serious: Yes (Other)
  Sender: FDA-Public Use
  Company Number: JP-VERTEX PHARMACEUTICALS INC.-2012-026512

PATIENT
  Age: 65 Year
  Sex: Male

DRUGS (16)
  1. VX-950 (TELAPREVIR) [Suspect]
     Indication: CHRONIC HEPATITIS C
     Dosage: 1500 MG, QD
     Route: 048
     Dates: start: 20120618, end: 20120916
  2. RIBAVIRIN [Suspect]
     Indication: CHRONIC HEPATITIS C
     Dosage: 400 MG, QD
     Route: 048
     Dates: start: 20120618, end: 20120729
  3. RIBAVIRIN [Suspect]
     Dosage: 200 MG, QD
     Route: 048
     Dates: start: 20120730
  4. PEGINTERFERON ALFA-2B [Suspect]
     Indication: CHRONIC HEPATITIS C
     Dosage: 1.5 ?G/KG, QW
     Route: 058
     Dates: start: 20120618, end: 20120625
  5. PEGINTERFERON ALFA-2B [Suspect]
     Dosage: 0.72 ?G/KG, QW
     Route: 058
     Dates: start: 20120702, end: 20120723
  6. PEGINTERFERON ALFA-2B [Suspect]
     Dosage: 0.72 ?G/KG, QW
     Route: 058
     Dates: start: 20120807, end: 20120807
  7. PEGINTERFERON ALFA-2B [Suspect]
     Dosage: 0.72 ?G/KG, QW
     Route: 058
     Dates: start: 20120827, end: 20120827
  8. PEGINTERFERON ALFA-2B [Suspect]
     Dosage: 0.72 ?G/KG, QW
     Route: 058
     Dates: start: 20120910, end: 20120910
  9. PEGINTERFERON ALFA-2B [Suspect]
     Dosage: 0.72 ?G/KG, QW
     Route: 058
     Dates: start: 20120918, end: 20121009
  10. PEGINTERFERON ALFA-2B [Suspect]
     Dosage: 0.72 ?G/KG, QW
     Route: 058
     Dates: start: 20121022, end: 20121022
  11. PEGINTERFERON ALFA-2B [Suspect]
     Dosage: 0.72 ?G/KG, QW
     Route: 058
     Dates: start: 20121105, end: 20121105
  12. PEGINTERFERON ALFA-2B [Suspect]
     Dosage: 0.72 ?G/KG, QW
     Route: 058
     Dates: start: 20121119
  13. MUCOSTA [Concomitant]
     Dosage: UNK, PRN
     Route: 048
     Dates: start: 20120618, end: 20120624
  14. MUCOSTA [Concomitant]
     Dosage: UNK, PRN
     Route: 048
     Dates: start: 20120730
  15. LOXONIN [Concomitant]
     Dosage: UNK, PRN
     Route: 048
     Dates: start: 20120616, end: 20120624
  16. LOXONIN [Concomitant]
     Dosage: UNK
     Route: 048
     Dates: start: 20120730

REACTIONS (2)
  - Neutrophil count decreased [Recovered/Resolved]
  - Platelet count decreased [Not Recovered/Not Resolved]
